FAERS Safety Report 6926233-8 (Version None)
Quarter: 2010Q3

REPORT INFORMATION
  Report Type: 
  Country: None (occurrence: None)
  Receive Date: 20100816
  Receipt Date: 20100802
  Transmission Date: 20110219
  Serious: Yes (Death)
  Sender: FDA-Public Use
  Company Number: US-MYLANLABS-2010S1013896

PATIENT
  Age: 43 Year
  Sex: Female

DRUGS (8)
  1. FENTANYL CITRATE [Suspect]
     Indication: OVERDOSE
     Dosage: ONE 75 MICROG/H PATCH
     Route: 062
  2. BUPROPION HCL [Concomitant]
     Route: 065
  3. CARISOPRODOL [Concomitant]
     Route: 065
  4. MEPROBAMATE [Concomitant]
     Route: 065
  5. HYDROCODONE BITARTRATE [Concomitant]
     Route: 065
  6. PROMETHAZINE [Concomitant]
     Route: 065
  7. SERTRALINE HYDROCHLORIDE [Concomitant]
     Route: 065
  8. ACETAMINOPHEN [Concomitant]
     Route: 065

REACTIONS (2)
  - DEATH [None]
  - OVERDOSE [None]
